FAERS Safety Report 7960388-1 (Version None)
Quarter: 2011Q4

REPORT INFORMATION
  Report Type: 
  Country: None (occurrence: None)
  Receive Date: 20111206
  Receipt Date: 20111128
  Transmission Date: 20120403
  Serious: Yes (Hospitalization)
  Sender: FDA-Public Use
  Company Number: US-CELGENEUS-163-21880-11101364

PATIENT
  Sex: Male

DRUGS (4)
  1. ADRIAMYCIN PFS [Concomitant]
     Dosage: 103 MILLIGRAM
     Route: 065
     Dates: start: 20110819
  2. RITUXAN [Concomitant]
     Dosage: 772 MILLIGRAM
     Route: 065
     Dates: start: 20110819
  3. CYTOXAN [Concomitant]
     Dosage: 1545 MILLIGRAM
     Route: 065
     Dates: start: 20110819
  4. REVLIMID [Suspect]
     Dosage: 10 MILLIGRAM
     Route: 048
     Dates: start: 20110801, end: 20110801

REACTIONS (3)
  - PYREXIA [None]
  - CHILLS [None]
  - CHRONIC LYMPHOCYTIC LEUKAEMIA [None]
